FAERS Safety Report 22247705 (Version 1)
Quarter: 2023Q2

REPORT INFORMATION
  Report Type: Spontaneous
  Country: US (occurrence: US)
  Receive Date: 20230425
  Receipt Date: 20230425
  Transmission Date: 20230721
  Serious: No
  Sender: FDA-Public Use
  Company Number: US-BRISTOL-MYERS SQUIBB COMPANY-2023-058479

PATIENT
  Age: 85 Year
  Sex: Female
  Weight: 86.18 kg

DRUGS (4)
  1. REVLIMID [Suspect]
     Active Substance: LENALIDOMIDE
     Indication: Mantle cell lymphoma
     Dosage: DOSE : UNAVAILABLE;     FREQ : 21 DAYS ON , ONE WEEK OFF
     Route: 048
  2. REVLIMID [Suspect]
     Active Substance: LENALIDOMIDE
     Dosage: DOSE : UNAVAILABLE;     FREQ : 21 DAYS ON , ONE WEEK OFF
     Route: 048
     Dates: start: 202302
  3. METOPROLOL [Concomitant]
     Active Substance: METOPROLOL
     Indication: Product used for unknown indication
  4. LISINOPRIL [Concomitant]
     Active Substance: LISINOPRIL
     Indication: Product used for unknown indication

REACTIONS (6)
  - Peripheral swelling [Unknown]
  - Swelling face [Unknown]
  - Swollen tongue [Unknown]
  - Lip swelling [Unknown]
  - Dyspnoea [Unknown]
  - Lip dry [Unknown]

NARRATIVE: CASE EVENT DATE: 20230401
